FAERS Safety Report 8037445-7 (Version None)
Quarter: 2012Q1

REPORT INFORMATION
  Report Type: 
  Country: None (occurrence: None)
  Receive Date: 20120106
  Receipt Date: 20111220
  Transmission Date: 20120608
  Serious: Yes (Other)
  Sender: FDA-Public Use
  Company Number: TPA2011A07990

PATIENT
  Age: 80 Year
  Sex: Female

DRUGS (5)
  1. FOSAMAX [Concomitant]
  2. HYTACAND (HYDROCHLOROTHIAZIDE, CANDESARTAN CILEXETIL) [Concomitant]
  3. LEVOTHYROXINE SODIUM [Concomitant]
  4. ADENURIC (FEBUXOSTAT) [Suspect]
     Indication: HYPERURICAEMIA
     Dosage: 80 MG (80 MG, 1 IN 1 D) ORAL
     Route: 048
  5. CALCIUM CARBONATE /COLECALCIFEROL (COLECALCIFEROL, CALCIUM CARBONATE) [Concomitant]

REACTIONS (1)
  - DRUG HYPERSENSITIVITY [None]
